FAERS Safety Report 7221140-8 (Version None)
Quarter: 2011Q1

REPORT INFORMATION
  Report Type: 
  Country: None (occurrence: None)
  Receive Date: 20110112
  Receipt Date: 20110107
  Transmission Date: 20110831
  Serious: Yes (Other)
  Sender: FDA-Public Use
  Company Number: CL-PFIZER INC-2010173823

PATIENT
  Age: 78 Year
  Sex: Female

DRUGS (3)
  1. MEDROL [Suspect]
     Dosage: 8 MG, ALTERNATE DAY
  2. MEDROL [Suspect]
     Dosage: 8 MG, 1X/DAY
  3. MEDROL [Suspect]
     Indication: OSTEOARTHRITIS
     Dosage: 16 MG, 1X/DAY
     Dates: start: 20100601

REACTIONS (3)
  - URINARY TRACT INFECTION [None]
  - STOMATITIS [None]
  - ORAL INFECTION [None]
